FAERS Safety Report 6898187-4 (Version None)
Quarter: 2010Q3

REPORT INFORMATION
  Report Type: 
  Country: None (occurrence: None)
  Receive Date: 20100802
  Receipt Date: 20070926
  Transmission Date: 20110219
  Serious: No
  Sender: FDA-Public Use
  Company Number: US-PFIZER INC-2007078608

PATIENT
  Age: 57 Year
  Sex: Male
  Weight: 94.5 kg

DRUGS (4)
  1. LYRICA [Suspect]
     Indication: TRIGEMINAL NEURALGIA
     Dates: start: 20060901
  2. ADVAIR DISKUS 100/50 [Concomitant]
  3. MONTELUKAST SODIUM [Concomitant]
  4. LIPITOR [Concomitant]

REACTIONS (5)
  - DRUG EFFECT DECREASED [None]
  - OEDEMA [None]
  - SOMNOLENCE [None]
  - VISION BLURRED [None]
  - WEIGHT INCREASED [None]
